FAERS Safety Report 9425954 (Version 1)
Quarter: 2013Q3

REPORT INFORMATION
  Report Type: Spontaneous
  Country: US (occurrence: US)
  Receive Date: 20130729
  Receipt Date: 20130729
  Transmission Date: 20140515
  Serious: No
  Sender: FDA-Public Use
  Company Number: US-009507513-1307USA014529

PATIENT
  Age: 32 Year
  Sex: Female
  Weight: 53.52 kg

DRUGS (6)
  1. IMPLANON [Suspect]
     Indication: CONTRACEPTION
     Dosage: 1 ROD
     Route: 059
     Dates: start: 20130612
  2. IMPLANON [Suspect]
     Dosage: UNK
     Route: 059
     Dates: end: 20130612
  3. VALTREX [Concomitant]
  4. ARMOUR THYROID TABLETS [Concomitant]
  5. VITAMIN B COMPLEX [Concomitant]
  6. ADEMETIONINE [Concomitant]

REACTIONS (5)
  - Implant site bruising [Recovered/Resolved]
  - Implant site pain [Recovered/Resolved]
  - Device difficult to use [Unknown]
  - Implant site fibrosis [Recovered/Resolved]
  - Implant site scar [Recovered/Resolved]
